FAERS Safety Report 7807951-6 (Version None)
Quarter: 2011Q4

REPORT INFORMATION
  Report Type: 
  Country: None (occurrence: None)
  Receive Date: 20111011
  Receipt Date: 20111011
  Transmission Date: 20120403
  Serious: Yes (Hospitalization)
  Sender: FDA-Public Use
  Company Number: None

PATIENT
  Age: 53 Year
  Sex: Female

DRUGS (5)
  1. ACIPHEX [Concomitant]
  2. MAPROTILINE [Concomitant]
  3. ZYPREXA [Concomitant]
  4. POTASSIUM CHLORIDE [Suspect]
     Indication: HYPOKALAEMIA
     Dosage: 7.5ML
     Route: 048
     Dates: start: 20110913, end: 20111008
  5. CAPTOPRIL [Concomitant]
     Route: 048

REACTIONS (1)
  - OESOPHAGEAL ULCER [None]
